FAERS Safety Report 22183882 (Version 2)
Quarter: 2023Q2

REPORT INFORMATION
  Report Type: Report from Study
  Country: CA (occurrence: CA)
  Receive Date: 20230406
  Receipt Date: 20230504
  Transmission Date: 20230722
  Serious: Yes (Other)
  Sender: FDA-Public Use
  Company Number: CA-ABBVIE-4715280

PATIENT
  Sex: Female

DRUGS (1)
  1. RINVOQ [Suspect]
     Active Substance: UPADACITINIB
     Indication: Rheumatoid arthritis
     Dosage: FORM STRENGTH: 15 MG?LAST ADMIN DATE- 2023
     Route: 048
     Dates: start: 20230113

REACTIONS (3)
  - Transient ischaemic attack [Recovered/Resolved]
  - Feeling abnormal [Unknown]
  - Dizziness [Unknown]
